FAERS Safety Report 5069851-7 (Version None)
Quarter: 2006Q3

REPORT INFORMATION
  Report Type: 
  Country: None (occurrence: None)
  Receive Date: 20060802
  Receipt Date: 20060802
  Transmission Date: 20061208
  Serious: No
  Sender: FDA-Public Use
  Company Number: None

PATIENT
  Age: 28 Year
  Sex: Female

DRUGS (1)
  1. MAGNESIUM SULFATE [Suspect]
     Indication: PRE-ECLAMPSIA
     Dosage: 6 GRAMS OVER 30 MIN IVBP
     Route: 042
     Dates: start: 20060705

REACTIONS (4)
  - CARDIOVASCULAR DISORDER [None]
  - HYPOTENSION [None]
  - INFUSION RELATED REACTION [None]
  - LOSS OF CONSCIOUSNESS [None]
